FAERS Safety Report 7763903-6 (Version None)
Quarter: 2011Q3

REPORT INFORMATION
  Report Type: 
  Country: None (occurrence: None)
  Receive Date: 20110921
  Receipt Date: 20110908
  Transmission Date: 20111222
  Serious: Yes (Hospitalization, Other)
  Sender: FDA-Public Use
  Company Number: US-JNJFOC-20110805098

PATIENT
  Sex: Female
  Weight: 8.62 kg

DRUGS (1)
  1. DESITIN RAPID RELIEF CREAMY [Suspect]
     Indication: DERMATITIS DIAPER
     Dosage: AS NECESSARY
     Route: 061
     Dates: start: 20110726

REACTIONS (6)
  - CONDITION AGGRAVATED [None]
  - DEHYDRATION [None]
  - DERMATITIS DIAPER [None]
  - HAEMORRHAGE [None]
  - DIARRHOEA [None]
  - APPLICATION SITE VESICLES [None]
